FAERS Safety Report 9321083 (Version 1)
Quarter: 2013Q2

REPORT INFORMATION
  Report Type: Spontaneous
  Country: US (occurrence: US)
  Receive Date: 20130531
  Receipt Date: 20130531
  Transmission Date: 20140414
  Serious: Yes (Other)
  Sender: FDA-Public Use
  Company Number: US-ELI_LILLY_AND_COMPANY-US201305005641

PATIENT
  Age: 60 Year
  Sex: Female

DRUGS (7)
  1. CYMBALTA [Suspect]
     Indication: MAJOR DEPRESSION
     Dosage: 60 MG, UNKNOWN
     Dates: start: 201207, end: 201207
  2. CYMBALTA [Suspect]
     Dosage: 30 MG, QD
     Dates: start: 201207, end: 201301
  3. ZOLOFT [Concomitant]
     Dosage: UNK
  4. NORVASC [Concomitant]
  5. XANAX [Concomitant]
     Dosage: 1 MG, TID
  6. NASONEX [Concomitant]
     Dosage: UNK, PRN
  7. PREDNISONE [Concomitant]
     Dosage: UNK, PRN

REACTIONS (16)
  - Chronic obstructive pulmonary disease [Unknown]
  - Breast pain [Unknown]
  - Breast mass [Unknown]
  - Breast enlargement [Unknown]
  - Breast discharge [Unknown]
  - Skin burning sensation [Unknown]
  - Skin wrinkling [Unknown]
  - Dry skin [Unknown]
  - Erythema [Unknown]
  - Memory impairment [Unknown]
  - Sweat gland disorder [Unknown]
  - Fatigue [Unknown]
  - Chills [Unknown]
  - Gait disturbance [Unknown]
  - Influenza like illness [Unknown]
  - Drug ineffective [Unknown]
